FAERS Safety Report 7329298-7 (Version None)
Quarter: 2011Q1

REPORT INFORMATION
  Report Type: 
  Country: None (occurrence: None)
  Receive Date: 20110303
  Receipt Date: 20110223
  Transmission Date: 20110831
  Serious: Yes (Other)
  Sender: FDA-Public Use
  Company Number: B0702625A

PATIENT
  Age: 54 Year
  Sex: Male
  Weight: 59 kg

DRUGS (3)
  1. AUGMENTIN '125' [Suspect]
     Dosage: 1G TWICE PER DAY
     Route: 048
     Dates: start: 20101124, end: 20101129
  2. ROCEPHIN [Suspect]
     Dosage: 2G PER DAY
     Route: 048
     Dates: start: 20101129, end: 20101205
  3. KLACID [Suspect]
     Dosage: 500MG TWICE PER DAY
     Route: 048
     Dates: start: 20101129, end: 20101205

REACTIONS (2)
  - HEPATOTOXICITY [None]
  - HEPATIC ENZYME INCREASED [None]
